FAERS Safety Report 4471958-X (Version None)
Quarter: 2004Q4

REPORT INFORMATION
  Report Type: 
  Country: None (occurrence: None)
  Receive Date: 20041007
  Receipt Date: 20040924
  Transmission Date: 20050328
  Serious: Yes (Hospitalization, Other)
  Sender: FDA-Public Use
  Company Number: 200408577

PATIENT

DRUGS (1)
  1. BOTOX [Suspect]
     Indication: SKIN WRINKLING

REACTIONS (5)
  - ABDOMINAL PAIN UPPER [None]
  - AGRANULOCYTOSIS [None]
  - C-REACTIVE PROTEIN INCREASED [None]
  - INFLUENZA LIKE ILLNESS [None]
  - LIVER DISORDER [None]
